FAERS Safety Report 15997082 (Version 1)
Quarter: 2019Q1

REPORT INFORMATION
  Report Type: Report from Study
  Country: US (occurrence: US)
  Receive Date: 20190222
  Receipt Date: 20190222
  Transmission Date: 20190418
  Serious: Yes (Other)
  Sender: FDA-Public Use
  Company Number: US-BAYER-2019-029156

PATIENT
  Age: 73 Year
  Sex: Male

DRUGS (7)
  1. PROBIOTIC 10 [Concomitant]
  2. LUPRON DEPOT [Concomitant]
     Active Substance: LEUPROLIDE ACETATE
     Dosage: UNK UNK, Q3MON
  3. CALCIUM ACETATE. [Concomitant]
     Active Substance: CALCIUM ACETATE
  4. FOLIC ACID. [Concomitant]
     Active Substance: FOLIC ACID
  5. VITRAKVI [Suspect]
     Active Substance: LAROTRECTINIB
     Indication: PROSTATE CANCER
     Dosage: 100 MG, BID
     Route: 048
     Dates: start: 20190128
  6. VITRAKVI [Suspect]
     Active Substance: LAROTRECTINIB
     Indication: PROSTATE CANCER
     Dosage: 100 MG, BID
     Route: 048
     Dates: start: 20190208
  7. VITAMIN B6 [Concomitant]
     Active Substance: PYRIDOXINE HYDROCHLORIDE

REACTIONS (8)
  - Pyrexia [Not Recovered/Not Resolved]
  - Fatigue [Not Recovered/Not Resolved]
  - Pain [Not Recovered/Not Resolved]
  - Myalgia [Not Recovered/Not Resolved]
  - Full blood count decreased [Recovering/Resolving]
  - Blood alkaline phosphatase increased [Not Recovered/Not Resolved]
  - Muscle strain [Not Recovered/Not Resolved]
  - Prostatic specific antigen increased [Not Recovered/Not Resolved]

NARRATIVE: CASE EVENT DATE: 20190217
